FAERS Safety Report 4647977-7 (Version None)
Quarter: 2005Q2

REPORT INFORMATION
  Report Type: 
  Country: None (occurrence: None)
  Receive Date: 20050331
  Receipt Date: 20050209
  Transmission Date: 20051028
  Serious: No
  Sender: FDA-Public Use
  Company Number: 05P-163-0289970-00

PATIENT
  Age: 52 Year
  Sex: Female
  Weight: 87.0906 kg

DRUGS (7)
  1. HUMIRA [Suspect]
     Indication: RHEUMATOID ARTHRITIS
     Dosage: 40 MG, 1 IN 2 WK, SUBCUTANEOUS
     Route: 058
     Dates: start: 20041201, end: 20050101
  2. HUMIRA [Suspect]
     Indication: RHEUMATOID ARTHRITIS
     Dosage: 40 MG, 1 IN 2 WK, SUBCUTANEOUS
     Route: 058
     Dates: start: 20050101
  3. METHTOTREXATE SODIUM [Concomitant]
  4. HYDROXYCHLOROQUINE PHOSPHATE [Concomitant]
  5. TRAZODONE [Concomitant]
  6. TRAMADOL HCL [Concomitant]
  7. CEPHALEXIN MONOHYDRATE [Concomitant]

REACTIONS (4)
  - INFLUENZA [None]
  - RASH PRURITIC [None]
  - SINUSITIS [None]
  - STOMATITIS [None]
